FAERS Safety Report 13809848 (Version 1)
Quarter: 2017Q3

REPORT INFORMATION
  Report Type: Spontaneous
  Country: CN (occurrence: CN)
  Receive Date: 20170728
  Receipt Date: 20170728
  Transmission Date: 20171127
  Serious: Yes (Other)
  Sender: FDA-Public Use
  Company Number: CN-MYLANLABS-2017M1045211

PATIENT

DRUGS (10)
  1. CYTARABINE. [Suspect]
     Active Substance: CYTARABINE
     Indication: ACUTE MYELOID LEUKAEMIA
     Dosage: 4G/(M2.DAY), 4/DAY, 6-5 DAYS BEFORE TRANSPLANT
     Route: 041
  2. BUSULFAN. [Suspect]
     Active Substance: BUSULFAN
     Indication: ACUTE MYELOID LEUKAEMIA
     Dosage: 0.8MG/(KG.TIME), 4/DAY, 9-7 DAYS BEFORE TRANSPLANT
     Route: 041
  3. CICLOSPORIN [Concomitant]
     Active Substance: CYCLOSPORINE
     Dosage: 2.5 MG/(KG.DAY), FROM 1 DAY BEFORE TRANSPLANT TO THE RECOVERY OF GASTROINTESTINAL FUNCTION
     Route: 042
  4. METHOTREXATE. [Concomitant]
     Active Substance: METHOTREXATE
     Indication: PROPHYLAXIS AGAINST GRAFT VERSUS HOST DISEASE
     Dosage: 15 MG/M2, 1 DAY AFTER TRANSPLANT, THEN ADMINISTERED 10 MG/M2, 3, 6 AND 11 DAYS AFTER TRANSPLANT
     Route: 065
  5. CYCLOPHOSPHAMIDE. [Suspect]
     Active Substance: CYCLOPHOSPHAMIDE
     Indication: ACUTE MYELOID LEUKAEMIA
     Dosage: 55 MG/(M2.DAY), 1/DAY, 4-3 DAYS BEFORE TRANSPLANT
     Route: 041
  6. CICLOSPORIN [Concomitant]
     Active Substance: CYCLOSPORINE
     Indication: PROPHYLAXIS AGAINST GRAFT VERSUS HOST DISEASE
     Dosage: 1.5 MG/(KG.DAY), FROM THE PRECONDITIONING TO 2 DAYS BEFORE TRANSPLANT, THEN GIVEN 2.5 MG/(KG.DAY)
     Route: 042
  7. METHOTREXATE. [Concomitant]
     Active Substance: METHOTREXATE
     Dosage: 10 MG/M2, 3, 6 AND 11 DAYS AFTER TRANSPLANT
     Route: 065
  8. CICLOSPORIN [Concomitant]
     Active Substance: CYCLOSPORINE
     Dosage: 5 MG/(KG.DAY)
     Route: 048
  9. MYCOPHENOLATE [Concomitant]
     Active Substance: MYCOPHENOLIC ACID
     Indication: PROPHYLAXIS AGAINST GRAFT VERSUS HOST DISEASE
     Dosage: 0.5-1.0 G/DAY, 2/DAY, FROM 7 DAYS TO 3 MONTHS AFTER TRANSPLANT, GRADUALLY PLANNED TO STOP
     Route: 048
  10. ANTITHYMOCYTE IMMUNOGLOBULIN [Concomitant]
     Active Substance: THYMOCYTE IMMUNE GLOBULIN NOS
     Indication: PROPHYLAXIS AGAINST GRAFT VERSUS HOST DISEASE
     Dosage: 5 MG/(KG.DAY), 4-1 DAYS BEFORE TRANSPLANT
     Route: 065

REACTIONS (1)
  - Venoocclusive liver disease [Unknown]
